FAERS Safety Report 7051685-5 (Version None)
Quarter: 2010Q4

REPORT INFORMATION
  Report Type: 
  Country: None (occurrence: None)
  Receive Date: 20101012
  Receipt Date: 20100928
  Transmission Date: 20110411
  Serious: Yes (Hospitalization)
  Sender: FDA-Public Use
  Company Number: DSA_44028_2010

PATIENT
  Age: 68 Year
  Sex: Female
  Weight: 85.2762 kg

DRUGS (22)
  1. CARDIZEM CD [Suspect]
     Indication: HYPERTENSION
     Dosage: (240 MG QD ORAL)
     Route: 048
     Dates: start: 20100204
  2. CARDIZEM CD [Suspect]
     Indication: RHEUMATOID ARTHRITIS
     Dosage: (240 MG QD ORAL)
     Route: 048
     Dates: start: 20100204
  3. CELECOXIB [Suspect]
     Indication: OSTEOARTHRITIS
     Dosage: (THREE TIMES DAILY ORAL)
     Route: 048
     Dates: start: 20091229
  4. NEXIUM [Concomitant]
  5. NOVOLOG [Concomitant]
  6. LEVEMIR [Concomitant]
  7. LASIX [Concomitant]
  8. BENICAR [Concomitant]
  9. PLAVIX [Concomitant]
  10. LYRICA [Concomitant]
  11. ALLOPURINOL [Concomitant]
  12. SALBUTAMOL [Concomitant]
  13. PROTONIX [Concomitant]
  14. CELEXA [Concomitant]
  15. SYNTHROID [Concomitant]
  16. HYDROXYZINE HYDROCHLORIDE [Concomitant]
  17. DRISDOL [Concomitant]
  18. NITROGLYCERIN [Concomitant]
  19. VALIUM [Concomitant]
  20. NORCO [Concomitant]
  21. LIDODERM [Concomitant]
  22. VYTORIN [Concomitant]

REACTIONS (1)
  - ILEUS [None]
